FAERS Safety Report 7368990-5 (Version None)
Quarter: 2011Q1

REPORT INFORMATION
  Report Type: 
  Country: None (occurrence: None)
  Receive Date: 20110308
  Receipt Date: 20110303
  Transmission Date: 20110831
  Serious: Yes (Other)
  Sender: FDA-Public Use
  Company Number: A0913392A

PATIENT
  Age: 67 Year
  Sex: Male

DRUGS (1)
  1. ALGINIC ACID + ALUMINUM HYDROXIDE + MAGNESIUM CARBONATE TAB (ALGIN.AC+ [Suspect]
     Dosage: ORAL
     Route: 048

REACTIONS (2)
  - TABLET PHYSICAL ISSUE [None]
  - CHOKING SENSATION [None]
